FAERS Safety Report 6458586-1 (Version None)
Quarter: 2009Q4

REPORT INFORMATION
  Report Type: 
  Country: None (occurrence: None)
  Receive Date: 20091126
  Receipt Date: 20091120
  Transmission Date: 20100525
  Serious: Yes (Hospitalization, Other)
  Sender: FDA-Public Use
  Company Number: FR-BRISTOL-MYERS SQUIBB COMPANY-14868954

PATIENT
  Age: 5 Month
  Sex: Male

DRUGS (4)
  1. AMIKLIN [Suspect]
     Indication: STAPHYLOCOCCAL INFECTION
     Dates: start: 20040627, end: 20040628
  2. CLAFORAN [Suspect]
     Indication: STAPHYLOCOCCAL INFECTION
     Dates: start: 20040627, end: 20040628
  3. VANCOMYCIN [Suspect]
     Indication: STAPHYLOCOCCAL INFECTION
     Dosage: INTERRUPTED ON 02JUL04. ON 01-OCT-2009 VANCOMYCINE 900 MG/24H IV WAS RECHALLENGED FOR 6 DAYS
     Dates: start: 20040627
  4. RANIPLEX [Suspect]
     Dosage: ADMINISTERED IN THE PARENTERAL POUCHES
     Route: 042
     Dates: start: 20040501, end: 20040702

REACTIONS (3)
  - ANAEMIA [None]
  - NEUTROPENIA [None]
  - THROMBOCYTOPENIA [None]
